FAERS Safety Report 18608966 (Version 2)
Quarter: 2021Q1

REPORT INFORMATION
  Report Type: Spontaneous
  Country: ZA (occurrence: ZA)
  Receive Date: 20201214
  Receipt Date: 20210124
  Transmission Date: 20210419
  Serious: Yes (Other)
  Sender: FDA-Public Use
  Company Number: ZA-YILING-ZA-2020-YPL-00005

PATIENT

DRUGS (2)
  1. ACICLOVIR [Interacting]
     Active Substance: ACYCLOVIR
     Indication: OPHTHALMIC HERPES SIMPLEX
     Route: 042
  2. ACYCLOVIR. [Suspect]
     Active Substance: ACYCLOVIR
     Indication: OPHTHALMIC HERPES SIMPLEX
     Route: 048

REACTIONS (4)
  - Ophthalmic herpes simplex [Recovering/Resolving]
  - Condition aggravated [Recovering/Resolving]
  - Drug resistance [Unknown]
  - Drug ineffective [Unknown]
